FAERS Safety Report 7329131-3 (Version None)
Quarter: 2011Q1

REPORT INFORMATION
  Report Type: 
  Country: None (occurrence: None)
  Receive Date: 20110303
  Receipt Date: 20110301
  Transmission Date: 20110831
  Serious: Yes (Other)
  Sender: FDA-Public Use
  Company Number: B0702762A

PATIENT
  Age: 63 Year
  Sex: Female
  Weight: 75 kg

DRUGS (1)
  1. ALLI [Suspect]
     Route: 048
     Dates: start: 20110204, end: 20110214

REACTIONS (2)
  - CONSTIPATION [None]
  - RECTAL HAEMORRHAGE [None]
